FAERS Safety Report 12597930 (Version 1)
Quarter: 2016Q3

REPORT INFORMATION
  Report Type: Spontaneous
  Country: GB (occurrence: GB)
  Receive Date: 20160726
  Receipt Date: 20160726
  Transmission Date: 20161109
  Serious: Yes (Other)
  Sender: FDA-Public Use
  Company Number: PHHY2016GB099315

PATIENT
  Age: 27 Year
  Sex: Female

DRUGS (1)
  1. AMOXICILLIN. [Suspect]
     Active Substance: AMOXICILLIN
     Indication: LOWER RESPIRATORY TRACT INFECTION
     Dosage: 500 MG, UNK
     Route: 048
     Dates: start: 20160706

REACTIONS (4)
  - Dysuria [Unknown]
  - Pollakiuria [Unknown]
  - Urinary tract infection [Not Recovered/Not Resolved]
  - Urinary retention [Unknown]

NARRATIVE: CASE EVENT DATE: 20160709
